FAERS Safety Report 6913229-5 (Version None)
Quarter: 2010Q3

REPORT INFORMATION
  Report Type: 
  Country: None (occurrence: None)
  Receive Date: 20100809
  Receipt Date: 20100729
  Transmission Date: 20110219
  Serious: Yes (Other)
  Sender: FDA-Public Use
  Company Number: US-BIOGENIDEC-2010BI021098

PATIENT
  Age: 43 Year
  Sex: Female

DRUGS (6)
  1. TYSABRI [Suspect]
     Indication: MULTIPLE SCLEROSIS
     Route: 042
     Dates: start: 20100524
  2. IRON [Concomitant]
     Indication: IRON DEFICIENCY ANAEMIA
     Route: 042
  3. SINGULAIR [Concomitant]
     Indication: PREMEDICATION
     Route: 048
  4. HYDROXYZINE [Concomitant]
     Indication: PREMEDICATION
     Route: 048
  5. PREDNISONE [Concomitant]
     Indication: PREMEDICATION
     Route: 048
  6. ZANTAC [Concomitant]
     Indication: PREMEDICATION
     Route: 048

REACTIONS (3)
  - CONVULSION [None]
  - DRUG EFFECT DECREASED [None]
  - POSTICTAL HEADACHE [None]
